FAERS Safety Report 17829668 (Version 2)
Quarter: 2020Q2

REPORT INFORMATION
  Report Type: Report from Study
  Country: None (occurrence: US)
  Receive Date: 20200527
  Receipt Date: 20200602
  Transmission Date: 20200714
  Serious: No
  Sender: FDA-Public Use
  Company Number: US-BIOVITRUM-2020US1071

PATIENT
  Sex: Female

DRUGS (1)
  1. KINERET [Suspect]
     Active Substance: ANAKINRA
     Indication: PYREXIA
     Route: 058
     Dates: start: 20200418

REACTIONS (7)
  - Emotional disorder [Unknown]
  - Off label use [Unknown]
  - Pain [Unknown]
  - Foot fracture [Unknown]
  - Weight increased [Unknown]
  - Decreased appetite [Unknown]
  - Precocious puberty [Unknown]
